FAERS Safety Report 18685333 (Version 4)
Quarter: 2021Q3

REPORT INFORMATION
  Report Type: Report from Study
  Country: None (occurrence: US)
  Receive Date: 20201231
  Receipt Date: 20210713
  Transmission Date: 20211014
  Serious: Yes (Other)
  Sender: FDA-Public Use
  Company Number: US-ABBVIE-20K-163-3542789-00

PATIENT
  Age: 56 Year
  Sex: Female
  Weight: 81.72 kg

DRUGS (1)
  1. HUMIRA [Suspect]
     Active Substance: ADALIMUMAB
     Indication: PSORIATIC ARTHROPATHY
     Route: 058
     Dates: start: 20200617

REACTIONS (13)
  - Anxiety [Unknown]
  - Depression [Unknown]
  - Musculoskeletal stiffness [Recovering/Resolving]
  - Post procedural swelling [Unknown]
  - Gait disturbance [Unknown]
  - Injection site bruising [Recovered/Resolved]
  - Skin plaque [Not Recovered/Not Resolved]
  - Arthritis [Unknown]
  - Meniscus injury [Unknown]
  - Pain [Not Recovered/Not Resolved]
  - Arthralgia [Unknown]
  - Post procedural complication [Unknown]
  - Joint stiffness [Unknown]

NARRATIVE: CASE EVENT DATE: 2020
